FAERS Safety Report 7921454-X (Version None)
Quarter: 2011Q4

REPORT INFORMATION
  Report Type: 
  Country: None (occurrence: None)
  Receive Date: 20111117
  Receipt Date: 20111111
  Transmission Date: 20120403
  Serious: Yes (Death, Hospitalization)
  Sender: FDA-Public Use
  Company Number: US-GILEAD-2011-0046358

PATIENT
  Sex: Female

DRUGS (3)
  1. FLOLAN [Concomitant]
     Indication: PULMONARY HYPERTENSION
  2. LETAIRIS [Suspect]
     Indication: PULMONARY HYPERTENSION
     Dosage: 5 MG, UNK
     Route: 048
     Dates: start: 20071001
  3. LETAIRIS [Suspect]
     Indication: CONNECTIVE TISSUE DISORDER

REACTIONS (5)
  - ANXIETY [None]
  - CARDIAC FAILURE [None]
  - PULMONARY HYPERTENSION [None]
  - AGITATION [None]
  - DYSPNOEA [None]
